FAERS Safety Report 8765756 (Version 1)
Quarter: 2012Q4

REPORT INFORMATION
  Report Type: 
  Country: US (occurrence: US)
  Receive Date: 20120904
  Receipt Date: 20120904
  Transmission Date: 20130627
  Serious: Yes (Other)
  Sender: FDA-Public Use
  Company Number: US-PFIZER INC-2012215088

PATIENT
  Sex: Female

DRUGS (4)
  1. MORPHINE SULFATE [Suspect]
     Dosage: UNK
     Route: 065
  2. OXYCONTIN [Suspect]
     Dosage: UNK
     Route: 065
  3. CODEINE [Suspect]
     Dosage: UNK
     Route: 065
  4. HYDROCODONE [Suspect]
     Dosage: UNK

REACTIONS (1)
  - Drug abuse [Unknown]
